FAERS Safety Report 9948809 (Version 2)
Quarter: 2014Q1

REPORT INFORMATION
  Report Type: Spontaneous
  Country: US (occurrence: US)
  Receive Date: 20140304
  Receipt Date: 20140330
  Transmission Date: 20141002
  Serious: No
  Sender: FDA-Public Use
  Company Number: US-009507513-1402USA012163

PATIENT
  Age: 58 Year
  Sex: Female

DRUGS (1)
  1. DULERA [Suspect]
     Dosage: TOTAL DAILY DOSE: 2 PUFFS
     Route: 055
     Dates: start: 20130120

REACTIONS (4)
  - Underdose [Unknown]
  - Product quality issue [Unknown]
  - Product container issue [Unknown]
  - No adverse event [Unknown]
